FAERS Safety Report 6613402-X (Version None)
Quarter: 2010Q1

REPORT INFORMATION
  Report Type: 
  Country: None (occurrence: None)
  Receive Date: 20100304
  Receipt Date: 20100224
  Transmission Date: 20100710
  Serious: Yes (Hospitalization)
  Sender: FDA-Public Use
  Company Number: US-JNJFOC-20100300171

PATIENT
  Sex: Male
  Weight: 56.7 kg

DRUGS (3)
  1. REMICADE [Suspect]
     Indication: CROHN'S DISEASE
     Route: 042
  2. FOLIC ACID [Concomitant]
     Indication: CROHN'S DISEASE
     Dosage: 5 YEARS
  3. PREDNISONE [Concomitant]
     Indication: CROHN'S DISEASE
     Dosage: 8 YEARS

REACTIONS (2)
  - ASTHENIA [None]
  - THERAPEUTIC RESPONSE DECREASED [None]
